FAERS Safety Report 15952191 (Version 5)
Quarter: 2023Q2

REPORT INFORMATION
  Report Type: Spontaneous
  Country: FR (occurrence: FR)
  Receive Date: 20190211
  Receipt Date: 20230503
  Transmission Date: 20230722
  Serious: Yes (Life-Threatening, Other)
  Sender: FDA-Public Use
  Company Number: FR-BIOGARAN-B18001708

PATIENT
  Age: 45 Year
  Sex: Female

DRUGS (5)
  1. MOXIFLOXACIN [Suspect]
     Active Substance: MOXIFLOXACIN
     Indication: Pneumonia pneumococcal
     Dosage: UNK
     Route: 065
  2. MOXIFLOXACIN [Suspect]
     Active Substance: MOXIFLOXACIN
     Indication: Pneumonia
  3. MOXIFLOXACIN [Suspect]
     Active Substance: MOXIFLOXACIN
     Indication: Pneumococcal infection
  4. PENICILLIN                         /00042301/ [Concomitant]
     Indication: Pneumonia pneumococcal
     Dosage: UNK
     Route: 065
  5. PENICILLIN                         /00042301/ [Concomitant]
     Dosage: 6 MG, (DOSE CUMULATED)
     Route: 065

REACTIONS (6)
  - Anaphylactic reaction [Unknown]
  - Respiratory disorder [Recovered/Resolved]
  - Cough [Recovered/Resolved]
  - Urticaria [Unknown]
  - Bronchospasm [Unknown]
  - Dyspnoea [Recovered/Resolved]
